FAERS Safety Report 7593711-0 (Version None)
Quarter: 2011Q3

REPORT INFORMATION
  Report Type: 
  Country: None (occurrence: None)
  Receive Date: 20110706
  Receipt Date: 20110622
  Transmission Date: 20111222
  Serious: Yes (Other)
  Sender: FDA-Public Use
  Company Number: PHHY2011IL55850

PATIENT
  Age: 77 Year
  Sex: Female

DRUGS (1)
  1. ZOLEDRONIC ACID [Suspect]
     Indication: OSTEOPOROSIS
     Route: 042
     Dates: start: 20110501

REACTIONS (10)
  - PRESYNCOPE [None]
  - RIB FRACTURE [None]
  - BLOOD PRESSURE DECREASED [None]
  - HEART RATE DECREASED [None]
  - NERVOUSNESS [None]
  - SPINAL FRACTURE [None]
  - ANXIETY [None]
  - DIZZINESS [None]
  - FALL [None]
  - PALLOR [None]
